FAERS Safety Report 8995114 (Version 1)
Quarter: 2012Q4

REPORT INFORMATION
  Report Type: Spontaneous
  Country: NL (occurrence: None)
  Receive Date: 20121221
  Receipt Date: 20121221
  Transmission Date: 20130627
  Serious: Yes (Life-Threatening)
  Sender: FDA-Public Use
  Company Number: FK201203956

PATIENT
  Age: 62 Year
  Sex: Female

DRUGS (12)
  1. CEFTRIAXON (MANUFACTURER UNKNOWN) (CEFTRIAXON-DINATRIUM) (CEFTRIAXON-DINATRIUM) [Suspect]
     Indication: PRODUCT USED FOR UNKNOWN INDICATION
     Route: 042
     Dates: start: 20120415, end: 20120415
  2. VOLUVEN [Suspect]
     Indication: PRODUCT USED FOR UNKNOWN INDICATION
  3. RITUXIMAB [Suspect]
     Indication: PRODUCT USED FOR UNKNOWN INDICATION
  4. LEVOTHYROXINE (LEVOTHYROXINE) [Concomitant]
  5. PAROXETINE (PAROXETINE) [Concomitant]
  6. PANTOPRAZOLE (PANTOPRAZOLE) [Concomitant]
  7. ALFACALCIDOL (ALFACALCIDOL) [Concomitant]
  8. ALLOPURINOL (ALLOPURINOL) [Concomitant]
  9. LEVOCETIRIZINE (LEVOCETIRIZINE) [Concomitant]
  10. HYDROXYZINE (HYDROXYZINE) [Concomitant]
  11. SIMVASTATIN (SIMVASTATIN) [Concomitant]
  12. NEBIVOLOL (NEBIVOLOL) [Concomitant]

REACTIONS (1)
  - Anaphylactic reaction [None]
